FAERS Safety Report 4661389-1 (Version None)
Quarter: 2005Q2

REPORT INFORMATION
  Report Type: 
  Country: None (occurrence: None)
  Receive Date: 20050512
  Receipt Date: 20041119
  Transmission Date: 20051028
  Serious: Yes (Life-Threatening, Hospitalization, Other)
  Sender: FDA-Public Use
  Company Number: 05-05-0775

PATIENT
  Age: 75 Year
  Sex: Female

DRUGS (2)
  1. VERAPAMIL HYDROCHLORIDE [Suspect]
     Indication: HYPERTENSION
     Dosage: 60MG ORAL
     Route: 048
     Dates: start: 20040913, end: 20041027
  2. SIMVASTATIN [Suspect]
     Indication: BLOOD CHOLESTEROL INCREASED
     Dosage: 80MG ORAL
     Route: 048
     Dates: end: 20041027

REACTIONS (1)
  - RHABDOMYOLYSIS [None]
